FAERS Safety Report 15351871 (Version 1)
Quarter: 2018Q3

REPORT INFORMATION
  Report Type: Report from Study
  Country: AR (occurrence: AR)
  Receive Date: 20180905
  Receipt Date: 20180905
  Transmission Date: 20181010
  Serious: Yes (Hospitalization)
  Sender: FDA-Public Use
  Company Number: PHHY2018AR084081

PATIENT
  Sex: Female

DRUGS (3)
  1. DIOVAN D [Suspect]
     Active Substance: HYDROCHLOROTHIAZIDE\VALSARTAN
     Indication: DYSURIA
  2. DIOVAN D [Suspect]
     Active Substance: HYDROCHLOROTHIAZIDE\VALSARTAN
     Indication: CARDIAC DISORDER
     Dosage: 1 DF, QD (HYDROCHLOROTHIAZIDE 12.5, VALSARTAN 160 UNITS NOT PROVIDED) (MORE THAN 10 YEARS AGO)
     Route: 065
     Dates: end: 20180803
  3. DIOVAN [Suspect]
     Active Substance: VALSARTAN
     Indication: CARDIAC DISORDER
     Dosage: 1 DF, QD (160 UNITS NOT PROVIDED)
     Route: 065
     Dates: start: 20180803

REACTIONS (2)
  - Blood potassium decreased [Recovering/Resolving]
  - Product use in unapproved indication [Unknown]
